FAERS Safety Report 10608242 (Version 1)
Quarter: 2014Q4

REPORT INFORMATION
  Report Type: Spontaneous
  Country: US (occurrence: US)
  Receive Date: 20141125
  Receipt Date: 20141125
  Transmission Date: 20150529
  Serious: Yes (Other)
  Sender: FDA-Public Use
  Company Number: US-PURDUE-USA-2014-0119160

PATIENT
  Age: 28 Year
  Sex: Female

DRUGS (1)
  1. OXYCONTIN [Suspect]
     Active Substance: OXYCODONE HYDROCHLORIDE
     Indication: PRODUCT USED FOR UNKNOWN INDICATION
     Dosage: UNKNOWN
     Dates: start: 20130514

REACTIONS (4)
  - Impaired driving ability [Unknown]
  - Somnolence [Unknown]
  - Neck pain [Unknown]
  - Road traffic accident [Unknown]

NARRATIVE: CASE EVENT DATE: 20130516
